FAERS Safety Report 8432560-8 (Version None)
Quarter: 2012Q2

REPORT INFORMATION
  Report Type: 
  Country: None (occurrence: None)
  Receive Date: 20120613
  Receipt Date: 20120611
  Transmission Date: 20120825
  Serious: No
  Sender: FDA-Public Use
  Company Number: US-ROXANE LABORATORIES, INC.-2012-RO-01413RO

PATIENT
  Age: 25 Year
  Sex: Male

DRUGS (1)
  1. METHADONE HCL [Suspect]
     Indication: PAIN
     Route: 048
     Dates: start: 20120608

REACTIONS (2)
  - NAUSEA [None]
  - MALAISE [None]
